FAERS Safety Report 8357510-4 (Version None)
Quarter: 2012Q2

REPORT INFORMATION
  Report Type: 
  Country: None (occurrence: None)
  Receive Date: 20120514
  Receipt Date: 20110621
  Transmission Date: 20120825
  Serious: No
  Sender: FDA-Public Use
  Company Number: US-TEVA-2011003223

PATIENT
  Sex: Female
  Weight: 104.42 kg

DRUGS (4)
  1. NUVIGIL [Suspect]
     Indication: NARCOLEPSY
     Dosage: 250 MILLIGRAM;
     Route: 048
     Dates: start: 20110620
  2. TRAZODONE HCL [Concomitant]
     Dates: start: 20110609
  3. CYANOCOBALAMIN [Concomitant]
     Dates: start: 20110601
  4. MIRAPEX [Concomitant]

REACTIONS (3)
  - HEADACHE [None]
  - NAUSEA [None]
  - DRUG INEFFECTIVE [None]
